FAERS Safety Report 12990069 (Version 1)
Quarter: 2016Q4

REPORT INFORMATION
  Report Type: Spontaneous
  Country: US (occurrence: US)
  Receive Date: 20161201
  Receipt Date: 20161201
  Transmission Date: 20170207
  Serious: No
  Sender: FDA-Public Use
  Company Number: US-WARNER CHILCOTT, LLC-1060277

PATIENT
  Age: 43 Year
  Sex: Female
  Weight: 72.27 kg

DRUGS (2)
  1. SYNTHROID [Concomitant]
     Active Substance: LEVOTHYROXINE SODIUM
  2. LO LOESTRIN FE [Suspect]
     Active Substance: ETHINYL ESTRADIOL\NORETHINDRONE ACETATE
     Indication: MENORRHAGIA
     Route: 048
     Dates: start: 2015, end: 201605

REACTIONS (3)
  - Skin discolouration [Not Recovered/Not Resolved]
  - Headache [Recovered/Resolved]
  - Product use issue [None]

NARRATIVE: CASE EVENT DATE: 2015
